FAERS Safety Report 9034305 (Version 1)
Quarter: 2013Q1

REPORT INFORMATION
  Report Type: Spontaneous
  Country: US (occurrence: None)
  Receive Date: 20130114
  Receipt Date: 20130114
  Transmission Date: 20140127
  Serious: Yes (Hospitalization)
  Sender: FDA-Public Use
  Company Number: FK201300026

PATIENT
  Age: 68 Year
  Sex: Female

DRUGS (3)
  1. OXALIPLATIN (MANUFACTURER UNKNOWN) (OXALIPLATIN) (OXALIPLATIN) [Suspect]
     Indication: RECTAL CANCER
  2. FLUOROURACIL (FLUOROURACIL) [Concomitant]
  3. LEUCOVORIN (CALCIUN FOLINATE) [Concomitant]

REACTIONS (12)
  - Thrombotic thrombocytopenic purpura [None]
  - Chest pain [None]
  - Blood pressure increased [None]
  - Heart rate increased [None]
  - Confusional state [None]
  - Post procedural haemorrhage [None]
  - Anaemia [None]
  - Blood creatinine increased [None]
  - Haemolysis [None]
  - Aspartate aminotransferase increased [None]
  - Blood bilirubin increased [None]
  - Haemodialysis [None]
